FAERS Safety Report 10160650 (Version 1)
Quarter: 2014Q2

REPORT INFORMATION
  Report Type: Spontaneous
  Country: US (occurrence: US)
  Receive Date: 20140508
  Receipt Date: 20140508
  Transmission Date: 20141212
  Serious: Yes (Hospitalization)
  Sender: FDA-Public Use
  Company Number: US-AMGEN-USASP2014032124

PATIENT
  Age: 6 Year
  Sex: Male

DRUGS (1)
  1. XGEVA [Suspect]
     Indication: ANEURYSMAL BONE CYST
     Dosage: UNK UNK, Q4WK
     Route: 065

REACTIONS (1)
  - Hypercalcaemia [Unknown]
